FAERS Safety Report 17969081 (Version 1)
Quarter: 2020Q3

REPORT INFORMATION
  Report Type: Spontaneous
  Country: US (occurrence: US)
  Receive Date: 20200701
  Receipt Date: 20200701
  Transmission Date: 20201103
  Serious: No
  Sender: FDA-Public Use
  Company Number: US-PFM-2019-07970

PATIENT
  Sex: Female
  Weight: 6.35 kg

DRUGS (2)
  1. HEMANGEOL [Suspect]
     Active Substance: PROPRANOLOL HYDROCHLORIDE
     Dosage: 2.2 MG/KG, UNK
     Route: 048
  2. HEMANGEOL [Suspect]
     Active Substance: PROPRANOLOL HYDROCHLORIDE
     Indication: INFANTILE HAEMANGIOMA
     Dosage: 2 ML, BID (2/DAY)
     Route: 048

REACTIONS (3)
  - Poor feeding infant [Recovered/Resolved]
  - Fatigue [Recovered/Resolved]
  - Hypoglycaemia [Recovered/Resolved]
